FAERS Safety Report 7399364-9 (Version None)
Quarter: 2011Q2

REPORT INFORMATION
  Report Type: 
  Country: None (occurrence: None)
  Receive Date: 20110407
  Receipt Date: 20110330
  Transmission Date: 20111010
  Serious: Yes (Hospitalization, Other)
  Sender: FDA-Public Use
  Company Number: US-SANOFI-AVENTIS-2011SA020215

PATIENT
  Age: 68 Year
  Sex: Female

DRUGS (4)
  1. COUMADIN [Concomitant]
  2. SOLOSTAR [Suspect]
  3. LANTUS [Suspect]
     Indication: TYPE 2 DIABETES MELLITUS
     Dosage: DOSE:28 UNIT(S)
     Route: 058
  4. NOVOLOG [Concomitant]
     Dosage: DOSE:24 UNIT(S)
     Route: 065

REACTIONS (4)
  - THROMBOSIS [None]
  - GAIT DISTURBANCE [None]
  - BLOOD GLUCOSE DECREASED [None]
  - PAIN IN EXTREMITY [None]
